FAERS Safety Report 9433801 (Version 1)
Quarter: 2013Q3

REPORT INFORMATION
  Report Type: Report from Study
  Country: US (occurrence: US)
  Receive Date: 20130731
  Receipt Date: 20130731
  Transmission Date: 20140515
  Serious: Yes (Other)
  Sender: FDA-Public Use
  Company Number: PHEH2012US025007

PATIENT
  Age: 28 Year
  Sex: Male
  Weight: 122.45 kg

DRUGS (6)
  1. AFINITOR [Suspect]
     Indication: ANGIOMYOLIPOMA
     Dosage: 5 MG DAILY
     Route: 048
     Dates: start: 20121129
  2. AFINITOR [Suspect]
     Dosage: 7.5 MG, QD
     Route: 048
     Dates: start: 20130515
  3. CELEXA [Concomitant]
     Dosage: 40 MG
  4. CELEXA [Concomitant]
     Dosage: 20 MG
  5. ABILIFY [Concomitant]
     Dosage: 5 MG, QD
  6. TEGRETOL [Concomitant]
     Dosage: 400 MG, BID

REACTIONS (11)
  - Nephrolithiasis [Unknown]
  - Pain [Unknown]
  - Dysuria [Unknown]
  - Nausea [Unknown]
  - Oropharyngeal pain [Unknown]
  - Feeling cold [Unknown]
  - Oral pain [Not Recovered/Not Resolved]
  - Hypersensitivity [Unknown]
  - Malaise [Unknown]
  - Pyrexia [Unknown]
  - Headache [Unknown]
